FAERS Safety Report 6896480-2 (Version None)
Quarter: 2010Q3

REPORT INFORMATION
  Report Type: 
  Country: None (occurrence: None)
  Receive Date: 20100802
  Receipt Date: 20100728
  Transmission Date: 20110219
  Serious: Yes (Death, Hospitalization, Other)
  Sender: FDA-Public Use
  Company Number: BR-ABBOTT-10P-020-0660109-00

PATIENT
  Sex: Male

DRUGS (7)
  1. HUMIRA [Suspect]
     Indication: RHEUMATOID ARTHRITIS
     Route: 058
     Dates: start: 20090101, end: 20100101
  2. METICORTEN [Concomitant]
     Indication: RHEUMATOID ARTHRITIS
     Route: 048
     Dates: start: 20060101, end: 20100101
  3. METICORTEN [Concomitant]
     Indication: VASCULITIS
  4. METHOTREXATE [Concomitant]
     Indication: RHEUMATOID ARTHRITIS
     Route: 058
     Dates: start: 20060101, end: 20100101
  5. METHOTREXATE [Concomitant]
     Indication: VASCULITIS
  6. CONCORD [Concomitant]
     Indication: MYOCARDIAL INFARCTION
     Route: 048
     Dates: start: 20100101, end: 20100101
  7. OMEPRAZOLE [Concomitant]
     Indication: GASTRITIS
     Route: 048
     Dates: start: 20060101, end: 20100101

REACTIONS (10)
  - COLD SWEAT [None]
  - COMA [None]
  - HYDROCEPHALUS [None]
  - HYPOGLYCAEMIA [None]
  - HYPOTHERMIA [None]
  - LISTLESS [None]
  - RESPIRATORY TRACT INFECTION [None]
  - SEPSIS [None]
  - SOMNOLENCE [None]
  - VOMITING [None]
